FAERS Safety Report 7926202 (Version 5)
Quarter: 2014Q2

REPORT INFORMATION
  Report Type: Spontaneous
  Country: US (occurrence: US)
  Receive Date: 20110502
  Receipt Date: 20140508
  Transmission Date: 20141212
  Serious: Yes (Hospitalization, Other)
  Sender: FDA-Public Use
  Company Number: US-ASTRAZENECA-2010SE49455

PATIENT
  Age: 51 Year
  Sex: Male
  Weight: 109.8 kg

DRUGS (21)
  1. NEXIUM [Suspect]
     Indication: GASTROOESOPHAGEAL REFLUX DISEASE
     Route: 048
  2. NEXIUM [Suspect]
     Indication: GASTROOESOPHAGEAL REFLUX DISEASE
     Route: 048
  3. ATENOLOL [Suspect]
     Indication: HYPERTENSION
     Route: 048
     Dates: start: 2000
  4. SYMBICORT [Suspect]
     Indication: CHRONIC OBSTRUCTIVE PULMONARY DISEASE
     Dosage: 160/4.5 MCG 2 INHALATIONS BID
     Route: 055
  5. METFORMIN HCL [Concomitant]
     Indication: DIABETES MELLITUS
     Route: 048
  6. FLEXERIL [Concomitant]
     Indication: MUSCLE SPASMS
     Dosage: 1 TABLET (10 MG) BID PRN
     Route: 048
  7. FLEXERIL [Concomitant]
     Indication: MUSCLE RELAXANT THERAPY
     Dosage: 1 TABLET (10 MG) BID PRN
     Route: 048
  8. HYDROCODONE/ACETAMINOPHEN [Concomitant]
     Indication: ARTHRALGIA
     Dosage: 7.5 MG/650 MG Q6H PRN
     Route: 048
  9. PROAIR HFA [Concomitant]
     Dosage: 90 MCG 1 TO 2 PUFFS Q4 TO 6 HR
     Route: 048
  10. DIGOXIN [Concomitant]
     Indication: SINUS ARRHYTHMIA
  11. ASPIRIN [Concomitant]
     Indication: ANTICOAGULANT THERAPY
  12. FUROSEMIDE [Concomitant]
     Indication: DIURETIC THERAPY
     Route: 048
     Dates: start: 201403
  13. WARFARIN [Concomitant]
     Indication: ANTICOAGULANT THERAPY
     Dosage: 3 OR 4 MONTHS AGO
     Route: 048
  14. WARFARIN [Concomitant]
     Indication: ANTICOAGULANT THERAPY
     Route: 048
  15. HYDROCODONE [Concomitant]
     Indication: PAIN
     Dosage: 7.5/325 PRN
     Route: 048
  16. HYDROCODONE [Concomitant]
     Indication: RHEUMATOID ARTHRITIS
     Dosage: 7.5/325 PRN
     Route: 048
  17. HYDROCODONE [Concomitant]
     Indication: PAIN
     Dosage: 6 YEARS AGO
     Route: 048
  18. HYDROCODONE [Concomitant]
     Indication: RHEUMATOID ARTHRITIS
     Dosage: 6 YEARS AGO
     Route: 048
  19. CYCLOBENVATIRINE [Concomitant]
     Indication: MUSCLE SPASMS
     Route: 048
     Dates: start: 2000
  20. ALAHIST [Concomitant]
     Indication: MULTIPLE ALLERGIES
     Dosage: 10/2MG PRN
     Route: 048
     Dates: start: 2013
  21. LORAZEPAM [Concomitant]
     Indication: ANXIETY
     Route: 048
     Dates: start: 2013

REACTIONS (18)
  - Sleep apnoea syndrome [Not Recovered/Not Resolved]
  - Heart rate abnormal [Unknown]
  - Oesophageal stenosis [Not Recovered/Not Resolved]
  - Gastrooesophageal reflux disease [Unknown]
  - Dyspnoea [Unknown]
  - Pharyngeal oedema [Unknown]
  - Chronic obstructive pulmonary disease [Not Recovered/Not Resolved]
  - Essential hypertension [Unknown]
  - Fatigue [Unknown]
  - Pain in extremity [Unknown]
  - Back pain [Unknown]
  - Type 2 diabetes mellitus [Unknown]
  - Throat irritation [Unknown]
  - Weight increased [Unknown]
  - Rhinorrhoea [Not Recovered/Not Resolved]
  - Insomnia [Not Recovered/Not Resolved]
  - Drug dose omission [Not Recovered/Not Resolved]
  - Off label use [Unknown]
